FAERS Safety Report 4774606-4 (Version None)
Quarter: 2005Q3

REPORT INFORMATION
  Report Type: 
  Country: None (occurrence: None)
  Receive Date: 20050921
  Receipt Date: 20050919
  Transmission Date: 20060218
  Serious: Yes (Death, Other)
  Sender: FDA-Public Use
  Company Number: PHNU2005DE03234

PATIENT
  Sex: Female

DRUGS (2)
  1. CLOZARIL [Suspect]
     Dosage: UNKNOWN
     Route: 048
  2. CIPRAMIL [Suspect]
     Dosage: UNKNOWN
     Route: 048

REACTIONS (3)
  - CARDIAC ARREST [None]
  - DRUG LEVEL INCREASED [None]
  - DRUG TOXICITY [None]
